FAERS Safety Report 17327394 (Version 1)
Quarter: 2020Q1

REPORT INFORMATION
  Report Type: Spontaneous
  Country: US (occurrence: US)
  Receive Date: 20200127
  Receipt Date: 20200127
  Transmission Date: 20200409
  Serious: Yes (Hospitalization, Other)
  Sender: FDA-Public Use
  Company Number: US-ASTRAZENECA-2020SE11462

PATIENT
  Sex: Male

DRUGS (14)
  1. SYNAGIS [Suspect]
     Active Substance: PALIVIZUMAB
     Indication: TRICUSPID VALVE DISEASE
     Route: 030
     Dates: start: 20191120
  2. SYNAGIS [Suspect]
     Active Substance: PALIVIZUMAB
     Indication: PULMONARY EMBOLISM
     Dosage: 50 MG/0.5 ML, 15 MG/KG, MONTHLY
     Route: 030
     Dates: start: 20191120
  3. SYNAGIS [Suspect]
     Active Substance: PALIVIZUMAB
     Indication: DEEP VEIN THROMBOSIS
     Dosage: 50 MG/0.5 ML, 15 MG/KG, MONTHLY
     Route: 030
     Dates: start: 20191120
  4. SYNAGIS [Suspect]
     Active Substance: PALIVIZUMAB
     Indication: HYPOPLASTIC LEFT HEART SYNDROME
     Route: 030
     Dates: start: 20191120
  5. SYNAGIS [Suspect]
     Active Substance: PALIVIZUMAB
     Indication: HEART DISEASE CONGENITAL
     Dosage: 50 MG/0.5 ML, 15 MG/KG, MONTHLY
     Route: 030
     Dates: start: 20191120
  6. SYNAGIS [Suspect]
     Active Substance: PALIVIZUMAB
     Indication: LARYNGOMALACIA
     Route: 030
     Dates: start: 20191120
  7. SYNAGIS [Suspect]
     Active Substance: PALIVIZUMAB
     Indication: LARYNGEAL STENOSIS
     Dosage: 50 MG/0.5 ML, 15 MG/KG, MONTHLY
     Route: 030
     Dates: start: 20191120
  8. SYNAGIS [Suspect]
     Active Substance: PALIVIZUMAB
     Indication: PULMONARY EMBOLISM
     Route: 030
     Dates: start: 20191120
  9. SYNAGIS [Suspect]
     Active Substance: PALIVIZUMAB
     Indication: DEEP VEIN THROMBOSIS
     Route: 030
     Dates: start: 20191120
  10. SYNAGIS [Suspect]
     Active Substance: PALIVIZUMAB
     Indication: HYPOPLASTIC LEFT HEART SYNDROME
     Dosage: 50 MG/0.5 ML, 15 MG/KG, MONTHLY
     Route: 030
     Dates: start: 20191120
  11. SYNAGIS [Suspect]
     Active Substance: PALIVIZUMAB
     Indication: LARYNGOMALACIA
     Dosage: 50 MG/0.5 ML, 15 MG/KG, MONTHLY
     Route: 030
     Dates: start: 20191120
  12. SYNAGIS [Suspect]
     Active Substance: PALIVIZUMAB
     Indication: TRICUSPID VALVE DISEASE
     Dosage: 50 MG/0.5 ML, 15 MG/KG, MONTHLY
     Route: 030
     Dates: start: 20191120
  13. SYNAGIS [Suspect]
     Active Substance: PALIVIZUMAB
     Indication: LARYNGEAL STENOSIS
     Route: 030
     Dates: start: 20191120
  14. SYNAGIS [Suspect]
     Active Substance: PALIVIZUMAB
     Indication: HEART DISEASE CONGENITAL
     Route: 030
     Dates: start: 20191120

REACTIONS (2)
  - Pyrexia [Unknown]
  - Sepsis [Unknown]
